FAERS Safety Report 24029953 (Version 1)
Quarter: 2024Q2

REPORT INFORMATION
  Report Type: Report from Study
  Country: GB (occurrence: GB)
  Receive Date: 20240628
  Receipt Date: 20240628
  Transmission Date: 20240716
  Serious: Yes (Other)
  Sender: FDA-Public Use
  Company Number: GB-SANDOZ-SDZ2024GB050842

PATIENT
  Sex: Female

DRUGS (1)
  1. HYRIMOZ [Suspect]
     Active Substance: ADALIMUMAB-ADAZ
     Indication: Rheumatoid arthritis
     Dosage: 40 MG, Q2W
     Route: 058
     Dates: start: 20240401

REACTIONS (7)
  - Crohn^s disease [Unknown]
  - Productive cough [Unknown]
  - Arthralgia [Unknown]
  - Headache [Unknown]
  - Drug ineffective [Unknown]
  - Product substitution issue [Unknown]
  - General physical health deterioration [Unknown]
